FAERS Safety Report 13115612 (Version 3)
Quarter: 2018Q1

REPORT INFORMATION
  Report Type: Report from Study
  Country: US (occurrence: US)
  Receive Date: 20170114
  Receipt Date: 20180306
  Transmission Date: 20180508
  Serious: Yes (Hospitalization)
  Sender: FDA-Public Use
  Company Number: PHEH2017US001056

PATIENT
  Age: 40 Year
  Sex: Male

DRUGS (4)
  1. AFINITOR [Suspect]
     Active Substance: EVEROLIMUS
     Indication: ANGIOMYOLIPOMA
  2. BOTOX [Concomitant]
     Active Substance: ONABOTULINUMTOXINA
     Indication: ASTHENIA
  3. AFINITOR [Suspect]
     Active Substance: EVEROLIMUS
     Indication: BENIGN RENAL NEOPLASM
     Dosage: 10 MG, QD
     Route: 048
     Dates: start: 20160407
  4. BOTOX [Concomitant]
     Active Substance: ONABOTULINUMTOXINA
     Indication: CEREBROVASCULAR ACCIDENT
     Dosage: UNK
     Route: 065

REACTIONS (14)
  - White blood cell count increased [Unknown]
  - Pain in extremity [Recovering/Resolving]
  - Nausea [Unknown]
  - Osteoarthritis [Recovering/Resolving]
  - Seizure [Unknown]
  - Pain [Unknown]
  - Gait disturbance [Unknown]
  - Weight increased [Unknown]
  - Gallbladder disorder [Unknown]
  - Abdominal pain [Recovering/Resolving]
  - Limb discomfort [Unknown]
  - Balance disorder [Unknown]
  - Blood pressure increased [Unknown]
  - Peripheral swelling [Unknown]

NARRATIVE: CASE EVENT DATE: 20170106
